FAERS Safety Report 6935074-7 (Version None)
Quarter: 2010Q3

REPORT INFORMATION
  Report Type: 
  Country: None (occurrence: None)
  Receive Date: 20100822
  Receipt Date: 20100811
  Transmission Date: 20110219
  Serious: Yes (Other)
  Sender: FDA-Public Use
  Company Number: PHHY2010BR48687

PATIENT
  Age: 27 Year
  Sex: Female
  Weight: 60 kg

DRUGS (3)
  1. TRILEPTAL [Suspect]
     Indication: NERVOUS SYSTEM DISORDER
     Dosage: 1 DF DAILY
     Route: 048
     Dates: start: 20060101
  2. TRILEPTAL [Suspect]
     Dosage: 1 DF DAILY
     Route: 048
     Dates: start: 20100706
  3. TRILEPTAL [Suspect]
     Dosage: UNK
     Route: 048
     Dates: start: 20100723

REACTIONS (2)
  - DIZZINESS [None]
  - LABYRINTHITIS [None]
